FAERS Safety Report 19751278 (Version 3)
Quarter: 2022Q3

REPORT INFORMATION
  Report Type: Spontaneous
  Country: CA (occurrence: CA)
  Receive Date: 20210826
  Receipt Date: 20220711
  Transmission Date: 20221027
  Serious: Yes (Other)
  Sender: FDA-Public Use
  Company Number: CA-SAMSUNG BIOEPIS-SB-2020-38496

PATIENT
  Age: 66 Year
  Sex: Male
  Weight: 108 kg

DRUGS (8)
  1. INFLIXIMAB [Suspect]
     Active Substance: INFLIXIMAB
     Indication: Colitis ulcerative
     Route: 042
  2. MESALAMINE [Concomitant]
     Active Substance: MESALAMINE
     Indication: Product used for unknown indication
     Dosage: TABLET (DELAYED AND EXTENDED RELEASE), ALSO KNOWN AS MESALAMINE
     Route: 065
  3. MESALAMINE [Concomitant]
     Active Substance: MESALAMINE
     Dosage: ALSO KNOWN AS MESALAMINE
     Route: 065
  4. MESALAMINE [Concomitant]
     Active Substance: MESALAMINE
     Dosage: ALSO KNOWN AS MESALAMINE
     Route: 048
  5. MESALAMINE [Concomitant]
     Active Substance: MESALAMINE
     Dosage: ALSO KNOWN AS MESALAMINE
     Route: 065
  6. SULFASALAZINE [Concomitant]
     Active Substance: SULFASALAZINE
     Indication: Product used for unknown indication
     Route: 065
  7. SULFASALAZINE [Concomitant]
     Active Substance: SULFASALAZINE
     Route: 048
  8. SULFASALAZINE [Concomitant]
     Active Substance: SULFASALAZINE
     Route: 065

REACTIONS (9)
  - Blood pressure increased [Recovered/Resolved]
  - Condition aggravated [Recovered/Resolved]
  - Inflammation [Recovered/Resolved]
  - Rectal haemorrhage [Recovered/Resolved]
  - Weight increased [Recovered/Resolved]
  - Therapeutic response shortened [Recovered/Resolved]
  - Intentional product use issue [Recovered/Resolved]
  - Off label use [Recovered/Resolved]
  - Incorrect dose administered [Recovered/Resolved]
